FAERS Safety Report 11120161 (Version 1)
Quarter: 2015Q2

REPORT INFORMATION
  Report Type: Spontaneous
  Country: JP (occurrence: JP)
  Receive Date: 20150518
  Receipt Date: 20150518
  Transmission Date: 20150821
  Serious: Yes (Hospitalization)
  Sender: FDA-Public Use
  Company Number: JP-PFIZER INC-2015030620

PATIENT
  Age: 65 Year
  Sex: Female
  Weight: 40 kg

DRUGS (13)
  1. BOSULIF [Suspect]
     Active Substance: BOSUTINIB MONOHYDRATE
     Dosage: 300 MG, DAILY
     Route: 048
  2. BIOFERMIN /01617201/ [Concomitant]
     Active Substance: BACILLUS SUBTILIS\LACTOBACILLUS ACIDOPHILUS\STREPTOCOCCUS FAECAIS
     Indication: PROPHYLAXIS
     Dosage: 1 DF, 3X/DAY
     Route: 048
     Dates: start: 20141208
  3. GOREISAN /08015901/ [Concomitant]
     Indication: PLEURAL EFFUSION
     Dosage: 2 G, 3X/DAY
     Route: 048
     Dates: start: 201411, end: 20141225
  4. DIART [Concomitant]
     Active Substance: AZOSEMIDE
     Indication: PLEURAL EFFUSION
     Dosage: 30 MG, 1X/DAY
     Route: 048
     Dates: start: 201411
  5. BOSULIF [Suspect]
     Active Substance: BOSUTINIB MONOHYDRATE
     Indication: CHRONIC MYELOID LEUKAEMIA
     Dosage: 500 MG, DAILY
     Route: 048
     Dates: start: 20141208
  6. LOPEMIN /00384302/ [Suspect]
     Active Substance: LOPERAMIDE HYDROCHLORIDE
     Indication: PROPHYLAXIS
     Dosage: UNK, AS NEEDED
     Route: 048
     Dates: start: 20141208, end: 201412
  7. PAXIL CR [Concomitant]
     Active Substance: PAROXETINE HYDROCHLORIDE
     Indication: DEPRESSION
     Dosage: 50 MG, 1X/DAY
     Route: 048
     Dates: start: 201309
  8. ABILIFY [Concomitant]
     Active Substance: ARIPIPRAZOLE
     Indication: DEPRESSION
     Dosage: 1.5 MG, 1X/DAY
     Route: 048
     Dates: start: 201312, end: 201504
  9. SLOW-K [Suspect]
     Active Substance: POTASSIUM CHLORIDE
     Indication: HYPOKALAEMIA
     Dosage: 600 MG, 2X/DAY
     Route: 048
     Dates: start: 20141128
  10. GASMOTIN [Suspect]
     Active Substance: MOSAPRIDE CITRATE
     Indication: PROPHYLAXIS
     Dosage: 5 MG, 3X/DAY
     Route: 048
     Dates: start: 20141208, end: 20141221
  11. CRESTOR [Concomitant]
     Active Substance: ROSUVASTATIN CALCIUM
     Indication: HYPERLIPIDAEMIA
     Dosage: 25 MG, 1X/DAY
     Route: 048
  12. FLUITRAN [Concomitant]
     Active Substance: TRICHLORMETHIAZIDE
     Indication: PLEURAL EFFUSION
     Dosage: 2 MG, 1X/DAY
     Route: 048
     Dates: start: 201312
  13. PROCYLIN [Suspect]
     Active Substance: BERAPROST SODIUM
     Indication: PULMONARY HYPERTENSION
     Dosage: 20 ?G, 3X/DAY
     Route: 048
     Dates: start: 20141128, end: 20141225

REACTIONS (3)
  - Diarrhoea [Recovered/Resolved]
  - Rash erythematous [Recovered/Resolved]
  - Constipation [Recovered/Resolved]

NARRATIVE: CASE EVENT DATE: 201412
